FAERS Safety Report 7919443-4 (Version None)
Quarter: 2011Q4

REPORT INFORMATION
  Report Type: 
  Country: None (occurrence: None)
  Receive Date: 20111117
  Receipt Date: 20111109
  Transmission Date: 20120403
  Serious: Yes (Hospitalization)
  Sender: FDA-Public Use
  Company Number: JP-AMGEN-JPNCT2011014064

PATIENT
  Age: 48 Year
  Sex: Male
  Weight: 83 kg

DRUGS (3)
  1. PANITUMUMAB [Suspect]
     Dosage: 360 MG, Q2WK
     Route: 041
     Dates: start: 20110401
  2. PANITUMUMAB [Suspect]
     Indication: COLORECTAL CANCER
     Dosage: 480 MG, Q2WK
     Route: 041
     Dates: start: 20110124, end: 20110221
  3. HUMALOG [Concomitant]
     Indication: DIABETES MELLITUS
     Route: 058
     Dates: start: 20100801

REACTIONS (4)
  - SUBCUTANEOUS ABSCESS [None]
  - DERMATITIS ACNEIFORM [None]
  - CELLULITIS [None]
  - PARONYCHIA [None]
